FAERS Safety Report 4641591-5 (Version None)
Quarter: 2005Q2

REPORT INFORMATION
  Report Type: 
  Country: None (occurrence: None)
  Receive Date: 20050420
  Receipt Date: 20050331
  Transmission Date: 20051028
  Serious: Yes (Other)
  Sender: FDA-Public Use
  Company Number: DE_050315378

PATIENT
  Age: 49 Year
  Sex: Female
  Weight: 92 kg

DRUGS (8)
  1. YENTREVE (DULOXETINE HYDROCHLORIDE) [Suspect]
     Indication: URINARY INCONTINENCE
     Dates: start: 20050112, end: 20050101
  2. DURAGESIC [Concomitant]
  3. ALRHEUMUN (KETOPROFEN) [Concomitant]
  4. NOVAMIN (PROCHLORPERAZINE0 [Concomitant]
  5. AMITRIPTYLINE HCL TAB [Concomitant]
  6. GLUCOPHAGE [Concomitant]
  7. DULCOLAX [Concomitant]
  8. CYCLO-PROGYNOVA [Concomitant]

REACTIONS (14)
  - ABDOMINAL PAIN UPPER [None]
  - ANOREXIA [None]
  - APATHY [None]
  - CIRCADIAN RHYTHM SLEEP DISORDER [None]
  - DEPRESSED MOOD [None]
  - DYSGEUSIA [None]
  - EUPHORIC MOOD [None]
  - FATIGUE [None]
  - FLUID INTAKE REDUCED [None]
  - HEADACHE [None]
  - MALAISE [None]
  - NAUSEA [None]
  - SUICIDAL IDEATION [None]
  - WEIGHT DECREASED [None]
